FAERS Safety Report 6382676-5 (Version None)
Quarter: 2009Q3

REPORT INFORMATION
  Report Type: 
  Country: None (occurrence: None)
  Receive Date: 20090930
  Receipt Date: 20090924
  Transmission Date: 20100115
  Serious: Yes (Hospitalization, Other)
  Sender: FDA-Public Use
  Company Number: DE-JNJFOC-20090907673

PATIENT
  Age: 75 Year
  Sex: Female

DRUGS (1)
  1. TAVANIC [Suspect]
     Indication: INFECTION
     Route: 048

REACTIONS (2)
  - HOSPITALISATION [None]
  - TENDON RUPTURE [None]
